FAERS Safety Report 17131142 (Version 5)
Quarter: 2020Q1

REPORT INFORMATION
  Report Type: Report from Study
  Country: US (occurrence: US)
  Receive Date: 20191209
  Receipt Date: 20200324
  Transmission Date: 20200409
  Serious: Yes (Hospitalization, Other)
  Sender: FDA-Public Use
  Company Number: US-ACTELION-A-NJ2017-152386

PATIENT
  Age: 78 Year
  Sex: Male
  Weight: 81.63 kg

DRUGS (14)
  1. LETAIRIS [Concomitant]
     Active Substance: AMBRISENTAN
  2. VELETRI [Suspect]
     Active Substance: EPOPROSTENOL
     Dosage: 7.5 NG/KG, PER MIN
     Route: 042
  3. ELIQUIS [Concomitant]
     Active Substance: APIXABAN
  4. VELETRI [Suspect]
     Active Substance: EPOPROSTENOL
     Dosage: 6 NG/KG, PER MIN
     Route: 042
  5. WARFARIN [Concomitant]
     Active Substance: WARFARIN
  6. DILTIAZEM. [Concomitant]
     Active Substance: DILTIAZEM
  7. VELETRI [Suspect]
     Active Substance: EPOPROSTENOL
     Indication: PULMONARY ARTERIAL HYPERTENSION
     Dosage: 5 NG/KG/MIN
     Route: 042
  8. LIPITOR [Suspect]
     Active Substance: ATORVASTATIN CALCIUM
     Indication: PRODUCT USED FOR UNKNOWN INDICATION
     Route: 065
  9. VELETRI [Suspect]
     Active Substance: EPOPROSTENOL
     Dosage: 7 NG/KG, PER MIN
     Route: 042
  10. VELETRI [Suspect]
     Active Substance: EPOPROSTENOL
     Dosage: 8 NG/KG, PER MIN
     Route: 042
  11. OPSUMIT [Concomitant]
     Active Substance: MACITENTAN
  12. UPTRAVI [Concomitant]
     Active Substance: SELEXIPAG
  13. TADALAFIL. [Concomitant]
     Active Substance: TADALAFIL
  14. PERCOCET [Concomitant]
     Active Substance: ACETAMINOPHEN\OXYCODONE HYDROCHLORIDE

REACTIONS (33)
  - Dyspnoea [Unknown]
  - Nausea [Not Recovered/Not Resolved]
  - Nephrolithiasis [Unknown]
  - Catheter site rash [Unknown]
  - Catheter site erythema [Unknown]
  - Walking distance test abnormal [Not Recovered/Not Resolved]
  - Oxygen consumption increased [Unknown]
  - Heart rate decreased [Unknown]
  - Condition aggravated [Not Recovered/Not Resolved]
  - Feeling abnormal [Unknown]
  - Hypersensitivity [Unknown]
  - Scleroderma [Unknown]
  - Musculoskeletal stiffness [Unknown]
  - Rash papular [Recovering/Resolving]
  - Diarrhoea [Unknown]
  - Gastrooesophageal reflux disease [Unknown]
  - Pancreatic cyst [Unknown]
  - Rash erythematous [Recovering/Resolving]
  - Blood pressure decreased [Unknown]
  - Unevaluable event [Unknown]
  - Hypoaesthesia [Unknown]
  - Pain [Unknown]
  - Heart rate irregular [Unknown]
  - Atrial fibrillation [Unknown]
  - Musculoskeletal pain [Unknown]
  - Dyspnoea exertional [Unknown]
  - Weight decreased [Unknown]
  - Pulmonary fibrosis [Not Recovered/Not Resolved]
  - Chest pain [Recovered/Resolved]
  - Pain in jaw [Unknown]
  - Headache [Unknown]
  - Abdominal pain upper [Unknown]
  - Rash [Recovering/Resolving]

NARRATIVE: CASE EVENT DATE: 201812
